FAERS Safety Report 16684435 (Version 10)
Quarter: 2021Q4

REPORT INFORMATION
  Report Type: Report from Study
  Country: NL (occurrence: NL)
  Receive Date: 20190808
  Receipt Date: 20211224
  Transmission Date: 20220303
  Serious: Yes (Death, Life-Threatening, Hospitalization, Other)
  Sender: FDA-Public Use
  Company Number: NL-GILEAD-2019-0420611

PATIENT
  Age: 58 Year
  Sex: Male
  Weight: 88.5 kg

DRUGS (45)
  1. AXICABTAGENE CILOLEUCEL [Suspect]
     Active Substance: AXICABTAGENE CILOLEUCEL
     Indication: Diffuse large B-cell lymphoma
     Dosage: 68
     Route: 042
     Dates: start: 20190718, end: 20190718
  2. CYCLOPHOSPHAMIDE [Suspect]
     Active Substance: CYCLOPHOSPHAMIDE
     Indication: Bone marrow conditioning regimen
     Dosage: 1098.73
     Route: 042
     Dates: start: 20190713, end: 20190713
  3. CYCLOPHOSPHAMIDE [Suspect]
     Active Substance: CYCLOPHOSPHAMIDE
     Dosage: 1090.29
     Route: 042
     Dates: start: 20190714, end: 20190715
  4. FLUDARABINE [Suspect]
     Active Substance: FLUDARABINE PHOSPHATE
     Indication: Bone marrow conditioning regimen
     Dosage: 65.92
     Route: 042
     Dates: start: 20190713, end: 20190713
  5. FLUDARABINE [Suspect]
     Active Substance: FLUDARABINE PHOSPHATE
     Dosage: 65.42
     Route: 042
     Dates: start: 20190715, end: 20190715
  6. OXYCODONE [Concomitant]
     Active Substance: OXYCODONE
     Dosage: 5,MG,AS NECESSARY
     Route: 048
     Dates: start: 20190711, end: 20190723
  7. OXYCODONE [Concomitant]
     Active Substance: OXYCODONE
     Dosage: 10,MG,TWICE DAILY
     Route: 048
     Dates: start: 20190730
  8. SULFAMETHOXAZOLE\TRIMETHOPRIM [Concomitant]
     Active Substance: SULFAMETHOXAZOLE\TRIMETHOPRIM
     Dosage: 480,MG,DAILY
     Route: 048
     Dates: start: 20190711
  9. SULFAMETHOXAZOLE\TRIMETHOPRIM [Concomitant]
     Active Substance: SULFAMETHOXAZOLE\TRIMETHOPRIM
     Dosage: 480,MG,DAILY
     Route: 048
     Dates: start: 20190711, end: 20190723
  10. SULFAMETHOXAZOLE\TRIMETHOPRIM [Concomitant]
     Active Substance: SULFAMETHOXAZOLE\TRIMETHOPRIM
     Dosage: 480,MG,DAILY
     Route: 048
     Dates: start: 20190729
  11. VALACYCLOVIR HYDROCHLORIDE [Concomitant]
     Active Substance: VALACYCLOVIR HYDROCHLORIDE
     Dosage: 500,MG,TWICE DAILY
     Route: 048
     Dates: start: 20190711, end: 20190723
  12. VALACYCLOVIR HYDROCHLORIDE [Concomitant]
     Active Substance: VALACYCLOVIR HYDROCHLORIDE
     Dosage: 500,MG,TWICE DAILY
     Route: 048
     Dates: start: 20190731
  13. MOVICOLON [Concomitant]
     Active Substance: POLYETHYLENE GLYCOL 3350\POTASSIUM CHLORIDE\SODIUM BICARBONATE\SODIUM CHLORIDE
     Dosage: 1,OTHER,AS NECESSARY
     Route: 048
     Dates: start: 20190711
  14. MOVICOLON [Concomitant]
     Active Substance: POLYETHYLENE GLYCOL 3350\POTASSIUM CHLORIDE\SODIUM BICARBONATE\SODIUM CHLORIDE
     Dosage: 1,OTHER,AS NECESSARY
     Route: 048
     Dates: start: 20190725
  15. MOVICOLON [Concomitant]
     Active Substance: POLYETHYLENE GLYCOL 3350\POTASSIUM CHLORIDE\SODIUM BICARBONATE\SODIUM CHLORIDE
     Dosage: 1,OTHER,AS NECESSARY
     Route: 048
     Dates: start: 20190711, end: 20190714
  16. MOVICOLON [Concomitant]
     Active Substance: POLYETHYLENE GLYCOL 3350\POTASSIUM CHLORIDE\SODIUM BICARBONATE\SODIUM CHLORIDE
     Dosage: 1,OTHER,DAILY
     Route: 048
     Dates: start: 20190715, end: 20190723
  17. MOVICOLON [Concomitant]
     Active Substance: POLYETHYLENE GLYCOL 3350\POTASSIUM CHLORIDE\SODIUM BICARBONATE\SODIUM CHLORIDE
     Dosage: 1,OTHER,AS NECESSARY
     Route: 048
     Dates: start: 20190724, end: 20190807
  18. ACETAMINOPHEN [Concomitant]
     Active Substance: ACETAMINOPHEN
     Dosage: 1000,MG,FOUR TIMES DAILY
     Route: 048
     Dates: start: 20190711, end: 20190723
  19. ACETAMINOPHEN [Concomitant]
     Active Substance: ACETAMINOPHEN
     Dosage: 1000,MG,ONCE
     Route: 048
     Dates: start: 20190718, end: 20190718
  20. ACETAMINOPHEN [Concomitant]
     Active Substance: ACETAMINOPHEN
     Dosage: 1000,MG,FOUR TIMES DAILY
     Route: 054
     Dates: start: 20190723, end: 20190728
  21. ACETAMINOPHEN [Concomitant]
     Active Substance: ACETAMINOPHEN
     Dosage: 1000,MG,FOUR TIMES DAILY
     Route: 048
     Dates: start: 20190730
  22. ONDANSETRON [Concomitant]
     Active Substance: ONDANSETRON
     Dosage: 4,MG,TWICE DAILY
     Route: 042
     Dates: start: 20190722, end: 20190722
  23. ONDANSETRON [Concomitant]
     Active Substance: ONDANSETRON
     Dosage: 4,MG,AS NECESSARY
     Route: 042
     Dates: start: 20190722, end: 20190727
  24. MEROPENEM [Concomitant]
     Active Substance: MEROPENEM
     Dosage: 1000,MG,THREE TIMES DAILY
     Route: 042
     Dates: start: 20190719, end: 20190722
  25. ALGELDRATE\MAGNESIUM HYDROXIDE [Concomitant]
     Active Substance: ALGELDRATE\MAGNESIUM HYDROXIDE
     Dosage: 15,ML,DAILY
     Route: 048
     Dates: start: 20190713, end: 20190713
  26. METOCLOPRAMIDE [Concomitant]
     Active Substance: METOCLOPRAMIDE
     Dosage: 10,MG,DAILY
     Route: 048
     Dates: start: 20190716, end: 20190716
  27. METOCLOPRAMIDE [Concomitant]
     Active Substance: METOCLOPRAMIDE
     Dosage: 10,MG,AS NECESSARY
     Route: 048
     Dates: start: 20190717, end: 20190722
  28. METOCLOPRAMIDE [Concomitant]
     Active Substance: METOCLOPRAMIDE
     Dosage: 10,MG,THREE TIMES DAILY
     Route: 048
     Dates: start: 20190722, end: 20190723
  29. METOCLOPRAMIDE [Concomitant]
     Active Substance: METOCLOPRAMIDE
     Dosage: 10,MG,DAILY
     Route: 042
     Dates: start: 20190723, end: 20190723
  30. METOCLOPRAMIDE [Concomitant]
     Active Substance: METOCLOPRAMIDE
     Dosage: 10,MG,THREE TIMES DAILY
     Route: 054
     Dates: start: 20190723, end: 20190726
  31. PANTOPRAZOLE [Concomitant]
     Active Substance: PANTOPRAZOLE
     Dosage: 40,MG,DAILY
     Route: 048
     Dates: start: 20190714
  32. LACTULOSE [Concomitant]
     Active Substance: LACTULOSE
     Dosage: 15,ML,DAILY
     Route: 048
     Dates: start: 20190717, end: 20190717
  33. LACTULOSE [Concomitant]
     Active Substance: LACTULOSE
     Dosage: 15,ML,AS NECESSARY
     Route: 048
     Dates: start: 20190718, end: 20190723
  34. LEVETIRACETAM [Concomitant]
     Active Substance: LEVETIRACETAM
     Dosage: 750,MG,TWICE DAILY
     Route: 048
     Dates: start: 20190717, end: 20190723
  35. LEVETIRACETAM [Concomitant]
     Active Substance: LEVETIRACETAM
     Dosage: 750,MG,TWICE DAILY
     Route: 042
     Dates: start: 20190723, end: 20190723
  36. LEVETIRACETAM [Concomitant]
     Active Substance: LEVETIRACETAM
     Dosage: 750,MG,TWICE DAILY
     Route: 048
     Dates: start: 20190726, end: 20190726
  37. LEVETIRACETAM [Concomitant]
     Active Substance: LEVETIRACETAM
     Dosage: 750,MG,TWICE DAILY
     Route: 048
     Dates: start: 20190717, end: 20190801
  38. LEVETIRACETAM [Concomitant]
     Active Substance: LEVETIRACETAM
     Dosage: 500,MG,TWICE DAILY
     Route: 048
     Dates: start: 20190802, end: 20190817
  39. LEVETIRACETAM [Concomitant]
     Active Substance: LEVETIRACETAM
     Dosage: 250,MG,TWICE DAILY
     Route: 048
     Dates: start: 20190818, end: 20190901
  40. MIDAZOLAM [Concomitant]
     Active Substance: MIDAZOLAM
     Dosage: 1,OTHER,AS NECESSARY
     Route: 045
     Dates: start: 20190717
  41. MIDAZOLAM [Concomitant]
     Active Substance: MIDAZOLAM
     Dosage: 1,OTHER,AS NECESSARY
     Route: 045
     Dates: start: 20190717, end: 20190807
  42. CLEMASTINE [Concomitant]
     Active Substance: CLEMASTINE
     Dosage: 2,MG,ONCE
     Route: 042
     Dates: start: 20190718, end: 20190718
  43. CALCIUM GLUCONATE [Concomitant]
     Active Substance: CALCIUM GLUCONATE
     Dosage: UN,OTHER,CONTINUOUS
     Route: 042
     Dates: start: 20190713, end: 20190713
  44. OXYGEN [Concomitant]
     Active Substance: OXYGEN
     Dosage: 2,L/MIN,CONTINUOUS
     Route: 045
     Dates: start: 20190718, end: 20190719
  45. OXYGEN [Concomitant]
     Active Substance: OXYGEN
     Dosage: 5,L/MIN,CONTINUOUS
     Route: 045
     Dates: start: 20190722, end: 20190726

REACTIONS (3)
  - Femoral neck fracture [Recovered/Resolved]
  - Encephalopathy [Recovered/Resolved]
  - Progressive multifocal leukoencephalopathy [Fatal]

NARRATIVE: CASE EVENT DATE: 20190722
